FAERS Safety Report 23580084 (Version 1)
Quarter: 2024Q1

REPORT INFORMATION
  Report Type: Spontaneous
  Country: ES (occurrence: ES)
  Receive Date: 20240229
  Receipt Date: 20240229
  Transmission Date: 20240409
  Serious: Yes (Other)
  Sender: FDA-Public Use
  Company Number: ES-GERMAN-LIT/ESP/24/0002773

PATIENT
  Age: 80 Year
  Sex: Male

DRUGS (1)
  1. DAPTOMYCIN [Suspect]
     Active Substance: DAPTOMYCIN
     Indication: Staphylococcal infection
     Dosage: UNK

REACTIONS (2)
  - Pulmonary toxicity [Unknown]
  - Product use in unapproved indication [Unknown]
